FAERS Safety Report 24895308 (Version 1)
Quarter: 2025Q1

REPORT INFORMATION
  Report Type: Spontaneous
  Country: IL (occurrence: IL)
  Receive Date: 20250128
  Receipt Date: 20250128
  Transmission Date: 20250409
  Serious: Yes (Other)
  Sender: MERCK
  Company Number: IL-009507513-2501ISR009916

PATIENT
  Sex: Female

DRUGS (1)
  1. KEYTRUDA [Suspect]
     Active Substance: PEMBROLIZUMAB
     Indication: Lung neoplasm malignant
     Dates: start: 2015

REACTIONS (6)
  - Lung carcinoma cell type unspecified recurrent [Unknown]
  - Pneumonia [Recovered/Resolved]
  - Pneumonia [Unknown]
  - Steroid diabetes [Recovered/Resolved with Sequelae]
  - Eye inflammation [Recovered/Resolved]
  - Arthritis [Unknown]
